FAERS Safety Report 12216162 (Version 1)
Quarter: 2016Q1

REPORT INFORMATION
  Report Type: Spontaneous
  Country: GB (occurrence: GB)
  Receive Date: 20160329
  Receipt Date: 20160329
  Transmission Date: 20160526
  Serious: Yes (Hospitalization)
  Sender: FDA-Public Use
  Company Number: GB-ORION CORPORATION ORION PHARMA-ENT 2016-0040

PATIENT
  Age: 81 Year
  Sex: Male
  Weight: 70 kg

DRUGS (23)
  1. DOCUSATE SODIUM. [Concomitant]
     Active Substance: DOCUSATE SODIUM
     Route: 065
     Dates: start: 20150728
  2. ZOPICLONE [Concomitant]
     Active Substance: ZOPICLONE
     Route: 065
     Dates: start: 20150728
  3. CETIRIZINE [Concomitant]
     Active Substance: CETIRIZINE HYDROCHLORIDE
     Route: 065
     Dates: start: 20160216
  4. PARACETAMOL [Concomitant]
     Active Substance: ACETAMINOPHEN
     Route: 065
     Dates: start: 20150728, end: 20160201
  5. BECONASE AQ [Concomitant]
     Active Substance: BECLOMETHASONE DIPROPIONATE MONOHYDRATE
     Route: 045
     Dates: start: 20150728
  6. LACTULOSE. [Concomitant]
     Active Substance: LACTULOSE
     Route: 065
     Dates: start: 20160201
  7. AVAMYS [Concomitant]
     Active Substance: FLUTICASONE FUROATE
     Route: 045
     Dates: start: 20160216
  8. BRINZOLAMIDE [Concomitant]
     Active Substance: BRINZOLAMIDE
     Route: 065
     Dates: start: 20150728
  9. E45 [Concomitant]
     Active Substance: LANOLIN\LIGHT MINERAL OIL\PARAFFIN
     Route: 065
     Dates: start: 20160224
  10. HYDROCORTISONE. [Concomitant]
     Active Substance: HYDROCORTISONE
     Route: 065
     Dates: start: 20160302, end: 20160309
  11. LAXIDO [Concomitant]
     Active Substance: POLYETHYLENE GLYCOL 3350\POTASSIUM CHLORIDE\SODIUM BICARBONATE\SODIUM CHLORIDE
     Route: 065
     Dates: start: 20150728
  12. QUETIAPINE [Concomitant]
     Active Substance: QUETIAPINE
     Route: 065
     Dates: start: 20150728
  13. DONEPEZIL HYDROCHLORIDE. [Concomitant]
     Active Substance: DONEPEZIL HYDROCHLORIDE
     Route: 065
     Dates: start: 20150728
  14. CONOTRANE [Concomitant]
     Route: 065
     Dates: start: 20160224, end: 20160302
  15. DUOTRAV [Concomitant]
     Active Substance: TIMOLOL MALEATE\TRAVOPROST
     Route: 065
     Dates: start: 20150728
  16. MADOPAR [Concomitant]
     Active Substance: BENSERAZIDE HYDROCHLORIDE\LEVODOPA
     Route: 065
     Dates: start: 20150728
  17. NYSTAN [Concomitant]
     Active Substance: NYSTATIN
     Route: 065
     Dates: start: 20160308
  18. DUTASTERIDE. [Concomitant]
     Active Substance: DUTASTERIDE
     Route: 065
     Dates: start: 20150728
  19. ISPAGHULA EXTRACT\PSYLLIUM [Concomitant]
     Active Substance: PLANTAGO OVATA SEED\PLANTAGO SEED
     Route: 065
     Dates: start: 20151214
  20. ENTACAPONE ORION [Suspect]
     Active Substance: ENTACAPONE
     Route: 065
     Dates: start: 20120206
  21. QUININE [Concomitant]
     Active Substance: QUININE
     Indication: MUSCLE SPASMS
     Route: 065
     Dates: start: 20150728
  22. SINEMET [Concomitant]
     Active Substance: CARBIDOPA\LEVODOPA
     Route: 065
     Dates: start: 20150728
  23. WARFARIN SODIUM. [Concomitant]
     Active Substance: WARFARIN SODIUM
     Route: 065
     Dates: start: 20160302

REACTIONS (1)
  - Liver disorder [Recovering/Resolving]

NARRATIVE: CASE EVENT DATE: 20160104
